FAERS Safety Report 9053385 (Version 1)
Quarter: 2013Q1

REPORT INFORMATION
  Report Type: Spontaneous
  Country: US (occurrence: US)
  Receive Date: 20130208
  Receipt Date: 20130208
  Transmission Date: 20140127
  Serious: No
  Sender: FDA-Public Use
  Company Number: US-MYLANLABS-2012S1025494

PATIENT
  Age: 94 Year
  Sex: Female
  Weight: 49.9 kg

DRUGS (3)
  1. MORPHINE SULFATE EXTENDED-RELEASE TABLETS ` [Suspect]
     Indication: BACK PAIN
     Route: 048
     Dates: start: 20121101, end: 20121105
  2. INDERAL [Concomitant]
     Route: 048
  3. BLOOD PRESSURE MEDICATION [Concomitant]
     Indication: BLOOD PRESSURE INCREASED
     Route: 048

REACTIONS (2)
  - Dementia [Recovered/Resolved]
  - Fear [Recovered/Resolved]
